FAERS Safety Report 5370969-X (Version None)
Quarter: 2007Q2

REPORT INFORMATION
  Report Type: 
  Country: None (occurrence: None)
  Receive Date: 20070626
  Receipt Date: 20070622
  Transmission Date: 20071010
  Serious: Yes (Hospitalization)
  Sender: FDA-Public Use
  Company Number: US-ROXANE LABORATORIES, INC-2007-BP-12591RO

PATIENT
  Sex: Female

DRUGS (3)
  1. PREDNISONE TAB [Suspect]
  2. BENICAR [Suspect]
  3. LEVAQUIN [Suspect]

REACTIONS (3)
  - CHRONIC OBSTRUCTIVE PULMONARY DISEASE [None]
  - PNEUMONIA [None]
  - PULMONARY CONGESTION [None]
